FAERS Safety Report 6818994-3 (Version None)
Quarter: 2010Q3

REPORT INFORMATION
  Report Type: 
  Country: None (occurrence: None)
  Receive Date: 20100707
  Receipt Date: 20100622
  Transmission Date: 20110219
  Serious: Yes (Hospitalization, Other)
  Sender: FDA-Public Use
  Company Number: FR-CELGENEUS-056-20785-10060894

PATIENT
  Age: 78 Year
  Sex: Female

DRUGS (5)
  1. THALIDOMIDE [Suspect]
     Indication: MULTIPLE MYELOMA
     Route: 048
     Dates: start: 20080501, end: 20081101
  2. THALIDOMIDE [Suspect]
     Route: 048
     Dates: start: 20090101
  3. MELPHALAN HYDROCHLORIDE [Concomitant]
     Indication: MULTIPLE MYELOMA
     Route: 065
     Dates: start: 20080501, end: 20081101
  4. PREDNISONE [Concomitant]
     Indication: MULTIPLE MYELOMA
     Route: 065
     Dates: start: 20080501, end: 20081101
  5. PREDNISONE [Concomitant]
     Route: 048
     Dates: start: 20090101

REACTIONS (2)
  - DISEASE PROGRESSION [None]
  - PERITONITIS [None]
